FAERS Safety Report 7648335-3 (Version None)
Quarter: 2011Q3

REPORT INFORMATION
  Report Type: 
  Country: None (occurrence: None)
  Receive Date: 20110801
  Receipt Date: 20110718
  Transmission Date: 20111222
  Serious: Yes (Other)
  Sender: FDA-Public Use
  Company Number: US-BAYER-2011-063331

PATIENT
  Age: 34 Year
  Sex: Female
  Weight: 113 kg

DRUGS (1)
  1. ALEVE (CAPLET) [Suspect]
     Indication: HEADACHE
     Dosage: BOTTLE COUNT 100S
     Route: 048
     Dates: start: 20110718, end: 20110718

REACTIONS (5)
  - ABDOMINAL PAIN [None]
  - COORDINATION ABNORMAL [None]
  - VOMITING [None]
  - DIZZINESS [None]
  - SOMNOLENCE [None]
